FAERS Safety Report 7657010-0 (Version None)
Quarter: 2011Q3

REPORT INFORMATION
  Report Type: 
  Country: None (occurrence: None)
  Receive Date: 20110801
  Receipt Date: 20110715
  Transmission Date: 20111222
  Serious: Yes (Death, Life-Threatening, Hospitalization, Other)
  Sender: FDA-Public Use
  Company Number: 2011MA008959

PATIENT
  Age: 57 Year
  Sex: Female

DRUGS (1)
  1. METFORMIN HCL [Suspect]
     Indication: HYPERGLYCAEMIA

REACTIONS (9)
  - HYPOTENSION [None]
  - VOMITING [None]
  - DYSPNOEA [None]
  - CARDIAC ARREST [None]
  - LETHARGY [None]
  - RESPIRATORY FAILURE [None]
  - VENTRICULAR TACHYCARDIA [None]
  - MYOCARDIAL INFARCTION [None]
  - LACTIC ACIDOSIS [None]
